FAERS Safety Report 8396419-7 (Version None)
Quarter: 2012Q2

REPORT INFORMATION
  Report Type: 
  Country: None (occurrence: None)
  Receive Date: 20120530
  Receipt Date: 20120516
  Transmission Date: 20120825
  Serious: Yes (Other)
  Sender: FDA-Public Use
  Company Number: US-ROCHE-1018488

PATIENT
  Sex: Male
  Weight: 59.02 kg

DRUGS (1)
  1. ACCUTANE [Suspect]
     Indication: ACNE CYSTIC
     Dates: start: 19850101, end: 19890101

REACTIONS (14)
  - INTESTINAL HAEMORRHAGE [None]
  - ABSCESS [None]
  - INFLAMMATORY BOWEL DISEASE [None]
  - SUICIDAL IDEATION [None]
  - CROHN'S DISEASE [None]
  - MUSCLE STRAIN [None]
  - DRY SKIN [None]
  - UPPER RESPIRATORY TRACT INFECTION [None]
  - TINEA PEDIS [None]
  - DEPRESSION [None]
  - COLITIS ULCERATIVE [None]
  - PILONIDAL CYST [None]
  - DERMAL CYST [None]
  - POLYARTHRITIS [None]
